FAERS Safety Report 5495873-8 (Version None)
Quarter: 2007Q4

REPORT INFORMATION
  Report Type: 
  Country: None (occurrence: None)
  Receive Date: 20071025
  Receipt Date: 20061106
  Transmission Date: 20080405
  Serious: No
  Sender: FDA-Public Use
  Company Number: A0626342A

PATIENT
  Age: 78 Year
  Sex: Female

DRUGS (8)
  1. ADVAIR DISKUS 100/50 [Suspect]
     Indication: ASTHMA
     Dosage: 1PUFF TWICE PER DAY
     Route: 055
     Dates: end: 20061105
  2. ACTONEL [Concomitant]
  3. CRESTOR [Concomitant]
  4. GLUCOSAMINE [Concomitant]
  5. CHONDROITIN [Concomitant]
  6. DAILY VITAMIN [Concomitant]
  7. PATANOL [Concomitant]
  8. NATURAL TEARS [Concomitant]

REACTIONS (7)
  - COUGH [None]
  - DRY MOUTH [None]
  - DRY THROAT [None]
  - IMPAIRED HEALING [None]
  - INCREASED VISCOSITY OF BRONCHIAL SECRETION [None]
  - SINUSITIS [None]
  - THROAT IRRITATION [None]
